FAERS Safety Report 6288693-8 (Version None)
Quarter: 2009Q3

REPORT INFORMATION
  Report Type: 
  Country: None (occurrence: None)
  Receive Date: 20090729
  Receipt Date: 20090720
  Transmission Date: 20100115
  Serious: Yes (Other)
  Sender: FDA-Public Use
  Company Number: CH-GENENTECH-285775

PATIENT
  Sex: Male
  Weight: 77 kg

DRUGS (9)
  1. AVASTIN [Suspect]
     Indication: COLORECTAL CANCER METASTATIC
     Dosage: UNK
     Route: 042
     Dates: start: 20060413, end: 20080908
  2. XELODA [Suspect]
     Indication: COLON NEOPLASM
     Dosage: UNK
     Route: 048
     Dates: start: 20070627, end: 20080124
  3. CAMPTOSAR [Concomitant]
     Indication: DRUG USE FOR UNKNOWN INDICATION
     Dosage: UNK
     Dates: start: 20060401, end: 20070226
  4. LEUCOVORIN CALCIUM [Concomitant]
     Indication: DRUG USE FOR UNKNOWN INDICATION
     Dosage: UNK
     Dates: start: 20060401, end: 20081008
  5. FLUOROURACIL [Concomitant]
     Indication: DRUG USE FOR UNKNOWN INDICATION
     Dosage: UNK
     Dates: start: 20060401, end: 20070226
  6. ELOXATIN [Concomitant]
     Indication: DRUG USE FOR UNKNOWN INDICATION
     Dosage: UNK
     Dates: start: 20060401, end: 20081008
  7. ERBITUX [Concomitant]
     Indication: DRUG USE FOR UNKNOWN INDICATION
     Dosage: UNK
     Dates: start: 20081021
  8. CALCIUM FOLINATE [Concomitant]
     Indication: DRUG USE FOR UNKNOWN INDICATION
     Dosage: UNK
     Dates: start: 20081021
  9. FLUOROURACIL [Concomitant]
     Indication: DRUG USE FOR UNKNOWN INDICATION
     Dosage: UNK
     Dates: start: 20081021

REACTIONS (3)
  - FOLLICULITIS [None]
  - NEOPLASM MALIGNANT [None]
  - TOOTH LOSS [None]
